FAERS Safety Report 8887314 (Version 3)
Quarter: 2012Q4

REPORT INFORMATION
  Report Type: 
  Country: CA (occurrence: CA)
  Receive Date: 20121101
  Receipt Date: 20121120
  Transmission Date: 20130627
  Serious: Yes (Disabling)
  Sender: FDA-Public Use
  Company Number: CA-PFIZER INC-2012253322

PATIENT
  Age: 82 Year
  Sex: Female

DRUGS (2)
  1. CORDARONE [Suspect]
     Indication: ARRHYTHMIA
     Dosage: 200 mg, 2x/day
     Route: 048
     Dates: start: 20121006, end: 20121019
  2. CORDARONE [Suspect]
     Dosage: 200 mg, 1x/day
     Route: 048
     Dates: start: 20121020, end: 20121101

REACTIONS (3)
  - Dysgeusia [Not Recovered/Not Resolved]
  - Food aversion [Not Recovered/Not Resolved]
  - Parosmia [Not Recovered/Not Resolved]
